FAERS Safety Report 6180916-9 (Version None)
Quarter: 2009Q2

REPORT INFORMATION
  Report Type: 
  Country: None (occurrence: None)
  Receive Date: 20090428
  Receipt Date: 20090407
  Transmission Date: 20091009
  Serious: Yes (Hospitalization)
  Sender: FDA-Public Use
  Company Number: THYM-1001005

PATIENT
  Age: 4 Year
  Sex: Female
  Weight: 15 kg

DRUGS (2)
  1. THYMOGLOBULIN [Suspect]
     Indication: ACUTE GRAFT VERSUS HOST DISEASE
     Dosage: 2.5 MG/KG, QD, INTRAVENOUS
     Route: 042
     Dates: start: 20081204, end: 20081208
  2. INFLIXIMAB (GENETICAL RECOMBINATION) (INFLIXIMAB (GENETICAL RECOMBINAT [Concomitant]

REACTIONS (1)
  - ENCEPHALOPATHY [None]
